FAERS Safety Report 5197108-2 (Version None)
Quarter: 2006Q4

REPORT INFORMATION
  Report Type: 
  Country: None (occurrence: None)
  Receive Date: 20061227
  Receipt Date: 20061212
  Transmission Date: 20070319
  Serious: Yes (Other)
  Sender: FDA-Public Use
  Company Number: 2006154167

PATIENT
  Age: 22 Month
  Sex: Male

DRUGS (2)
  1. CEFPODOXIME PROXETIL [Suspect]
     Indication: CONJUNCTIVITIS
     Dosage: SYRUP, ORAL
     Route: 048
     Dates: start: 20061201, end: 20061205
  2. CEFPODOXIME PROXETIL [Suspect]
     Indication: EAR INFECTION
     Dosage: SYRUP, ORAL
     Route: 048
     Dates: start: 20061201, end: 20061205

REACTIONS (2)
  - BALANCE DISORDER [None]
  - VERTIGO [None]
